FAERS Safety Report 22051478 (Version 1)
Quarter: 2023Q1

REPORT INFORMATION
  Report Type: Spontaneous
  Country: US (occurrence: US)
  Receive Date: 20230301
  Receipt Date: 20230301
  Transmission Date: 20230418
  Serious: Yes (Hospitalization, Other)
  Sender: FDA-Public Use
  Company Number: US-KVK-TECH, INC-20230200032

PATIENT

DRUGS (1)
  1. ACETAMINOPHEN\BUTALBITAL\CAFFEINE [Suspect]
     Active Substance: ACETAMINOPHEN\BUTALBITAL\CAFFEINE
     Dosage: UNK, UNKNOWN
     Route: 063

REACTIONS (7)
  - Depressed level of consciousness [Recovered/Resolved]
  - Somnolence neonatal [Recovered/Resolved]
  - Feeding disorder [Recovered/Resolved]
  - Lethargy [Recovered/Resolved]
  - Hyporeflexia [Recovered/Resolved]
  - Vomiting [Recovered/Resolved]
  - Maternal exposure during breast feeding [Unknown]
